FAERS Safety Report 14097690 (Version 3)
Quarter: 2018Q1

REPORT INFORMATION
  Report Type: Report from Study
  Country: RO (occurrence: RO)
  Receive Date: 20171017
  Receipt Date: 20180202
  Transmission Date: 20180508
  Serious: Yes (Hospitalization, Congenital Anomaly, Other)
  Sender: FDA-Public Use
  Company Number: RO-009507513-1710ROM004053

PATIENT
  Sex: Female
  Weight: 4.5 kg

DRUGS (3)
  1. ABACAVIR SULFATE (+) LAMIVUDINE [Suspect]
     Active Substance: ABACAVIR SULFATE\LAMIVUDINE
     Route: 064
  2. ISENTRESS [Suspect]
     Active Substance: RALTEGRAVIR POTASSIUM
     Route: 064
  3. INSULIN [Concomitant]
     Active Substance: INSULIN NOS
     Route: 064

REACTIONS (14)
  - Cerebral calcification [Unknown]
  - Foetal exposure during pregnancy [Recovered/Resolved]
  - Microcephaly [Unknown]
  - Apnoea [Unknown]
  - Hypoglycaemia neonatal [Unknown]
  - Apgar score abnormal [Unknown]
  - Resuscitation [Unknown]
  - Premature baby [Unknown]
  - Ectopic ureter [Unknown]
  - Patent ductus arteriosus [Unknown]
  - Pulmonary artery stenosis [Unknown]
  - Atrial septal defect [Unknown]
  - Lenticulostriatal vasculopathy [Unknown]
  - Oxygen saturation decreased [Unknown]

NARRATIVE: CASE EVENT DATE: 2016
